FAERS Safety Report 20161138 (Version 3)
Quarter: 2022Q1

REPORT INFORMATION
  Report Type: Spontaneous
  Country: JP (occurrence: JP)
  Receive Date: 20211208
  Receipt Date: 20220216
  Transmission Date: 20220423
  Serious: No
  Sender: FDA-Public Use
  Company Number: JP-TAKEDA-2021TUS077753

PATIENT
  Sex: Male

DRUGS (5)
  1. LIALDA [Suspect]
     Active Substance: MESALAMINE
     Indication: Colitis ulcerative
     Dosage: 1200 MILLIGRAM
     Route: 048
  2. LIALDA [Suspect]
     Active Substance: MESALAMINE
     Dosage: 4800 MILLIGRAM, QD
     Route: 048
     Dates: start: 20211112
  3. MIYA-BM [Concomitant]
     Active Substance: CLOSTRIDIUM BUTYRICUM SPORES STRAIN M-55
     Indication: Colitis ulcerative
     Dosage: 60 MILLIGRAM, QD
     Dates: start: 20200720
  4. FERROUS FUMARATE [Concomitant]
     Active Substance: FERROUS FUMARATE
     Indication: Iron deficiency anaemia
     Dosage: 100 GRAM
     Route: 048
     Dates: start: 20210514
  5. URSO [Concomitant]
     Active Substance: URSODIOL
     Indication: Hepatic function abnormal
     Dosage: 600 GRAM, QD
     Route: 048
     Dates: start: 20210823

REACTIONS (1)
  - Diarrhoea [Recovered/Resolved]
